FAERS Safety Report 17335041 (Version 1)
Quarter: 2020Q1

REPORT INFORMATION
  Report Type: Spontaneous
  Country: US (occurrence: US)
  Receive Date: 20200128
  Receipt Date: 20200128
  Transmission Date: 20200409
  Serious: No
  Sender: FDA-Public Use
  Company Number: US-ENDO PHARMACEUTICALS INC-2019-107682

PATIENT
  Sex: Female

DRUGS (2)
  1. RHEUMATREX [Suspect]
     Active Substance: METHOTREXATE SODIUM
     Indication: RHEUMATOID ARTHRITIS
     Dosage: 10 MG (2.5 MG, 4 TABLETS WEEKLY)
     Route: 048
     Dates: start: 20061229, end: 20070615
  2. RHEUMATREX [Suspect]
     Active Substance: METHOTREXATE SODIUM
     Dosage: 7.5 MG (2.5 MG, 3 TABLETS ON FRIDAY NIGHT WEEKLY)
     Route: 048
     Dates: start: 20090515, end: 20090918

REACTIONS (1)
  - Drug intolerance [Unknown]
